FAERS Safety Report 23045654 (Version 1)
Quarter: 2023Q4

REPORT INFORMATION
  Report Type: Other
  Country: CH (occurrence: None)
  Receive Date: 20231009
  Receipt Date: 20231009
  Transmission Date: 20240109
  Serious: Yes (Hospitalization, Other)
  Sender: FDA-Public Use
  Company Number: CH-ROCHE-3433193

PATIENT
  Age: 6 Decade
  Sex: Female

DRUGS (7)
  1. ATEZOLIZUMAB [Suspect]
     Active Substance: ATEZOLIZUMAB
     Indication: Malignant melanoma
     Route: 065
     Dates: start: 202103
  2. VEMURAFENIB [Suspect]
     Active Substance: VEMURAFENIB
     Indication: Malignant melanoma
     Route: 065
     Dates: start: 202103
  3. COBIMETINIB [Suspect]
     Active Substance: COBIMETINIB
     Indication: Malignant melanoma
     Route: 065
     Dates: start: 202103
  4. PREDNISONE [Concomitant]
     Active Substance: PREDNISONE
  5. PREDNISONE [Concomitant]
     Active Substance: PREDNISONE
  6. ENCORAFENIB [Concomitant]
     Active Substance: ENCORAFENIB
  7. BINIMETINIB [Concomitant]
     Active Substance: BINIMETINIB

REACTIONS (3)
  - Septic shock [Unknown]
  - Liver abscess [Recovered/Resolved]
  - Cholangitis sclerosing [Unknown]
